FAERS Safety Report 9254095 (Version 1)
Quarter: 2013Q2

REPORT INFORMATION
  Report Type: Spontaneous
  Country: US (occurrence: None)
  Receive Date: 20130417
  Receipt Date: 20130417
  Transmission Date: 20140414
  Serious: Yes (Other)
  Sender: FDA-Public Use
  Company Number: 2013035403

PATIENT
  Sex: Male
  Weight: 76.2 kg

DRUGS (8)
  1. PRIVIGEN (IMMUNE GLOBULIN INTRAVENOUS (HUMAN) 10% LIQUID) [Suspect]
     Indication: HYPOGAMMAGLOBULINAEMIA
     Dosage: 1X/4 WEEKS
     Route: 042
  2. RITUXAN (RITUXIMAB) [Concomitant]
  3. SODIUM CHLORIDE [Concomitant]
  4. DIPHENHYDRAMINE (DIPHENHYDRAMINE) [Concomitant]
  5. HEPARIN (HEPARIN) [Concomitant]
  6. EPI-PEN (EPINEPHRINE) [Concomitant]
  7. ADVIL [Concomitant]
  8. NEUPOGEN (FILGRASTIM) [Concomitant]

REACTIONS (4)
  - Respiratory tract infection [None]
  - Night sweats [None]
  - Headache [None]
  - Productive cough [None]
